FAERS Safety Report 9861689 (Version 1)
Quarter: 2014Q1

REPORT INFORMATION
  Report Type: Spontaneous
  Country: US (occurrence: None)
  Receive Date: 20140130
  Receipt Date: 20140130
  Transmission Date: 20141002
  Serious: Yes (Other)
  Sender: FDA-Public Use
  Company Number: 2013EXPUS00035

PATIENT
  Age: 64 Year
  Sex: Male
  Weight: 95.2 kg

DRUGS (1)
  1. EXPAREL (BUPIVACAINE) LIPOSOME INJECTABLE SUSPENSION, MG/ML [Suspect]
     Indication: POSTOPERATIVE ANALGESIA
     Dosage: UNKNOWN, 1X, INFILTRATION
     Dates: start: 20131213, end: 20131213

REACTIONS (12)
  - Arthralgia [None]
  - Joint range of motion decreased [None]
  - Local swelling [None]
  - Pain [None]
  - Local swelling [None]
  - Joint swelling [None]
  - Pain in extremity [None]
  - Mobility decreased [None]
  - Local swelling [None]
  - Local swelling [None]
  - Feeling hot [None]
  - Flushing [None]
